FAERS Safety Report 7607497-4 (Version None)
Quarter: 2011Q3

REPORT INFORMATION
  Report Type: 
  Country: None (occurrence: None)
  Receive Date: 20110713
  Receipt Date: 20110622
  Transmission Date: 20111222
  Serious: Yes (Other)
  Sender: FDA-Public Use
  Company Number: US-SANOFI-AVENTIS-2011SA030844

PATIENT
  Age: 66 Year
  Sex: Female
  Weight: 86 kg

DRUGS (7)
  1. LEVAQUIN [Concomitant]
     Dates: start: 20110509, end: 20110515
  2. CRESTOR [Concomitant]
  3. SOLOSTAR [Suspect]
     Dates: start: 20110301
  4. HUMALOG [Concomitant]
  5. FENOFIBRATE [Concomitant]
  6. LANTUS [Suspect]
     Dosage: DOSE:68 UNIT(S)
     Route: 058
     Dates: start: 20110301
  7. METFORMIN HCL [Concomitant]

REACTIONS (3)
  - DEVICE MALFUNCTION [None]
  - NASOPHARYNGITIS [None]
  - BLOOD GLUCOSE INCREASED [None]
